FAERS Safety Report 7502547-8 (Version None)
Quarter: 2011Q2

REPORT INFORMATION
  Report Type: 
  Country: None (occurrence: None)
  Receive Date: 20110525
  Receipt Date: 20110516
  Transmission Date: 20111010
  Serious: Yes (Other)
  Sender: FDA-Public Use
  Company Number: US-AMGEN-USASP2011025216

PATIENT
  Sex: Male

DRUGS (9)
  1. XGEVA [Suspect]
     Indication: METASTASES TO BONE
     Dosage: UNK
  2. ZINC [Concomitant]
  3. XGEVA [Suspect]
  4. XANAX [Concomitant]
  5. CALCIUM CARBONATE [Concomitant]
  6. MAGNESIUM [Concomitant]
  7. VITAMIN A [Concomitant]
  8. ZOCOR [Concomitant]
  9. ANTIHYPERTENSIVES [Concomitant]

REACTIONS (1)
  - HYPERTENSION [None]
